FAERS Safety Report 23073568 (Version 1)
Quarter: 2023Q4

REPORT INFORMATION
  Report Type: Spontaneous
  Country: KR (occurrence: KR)
  Receive Date: 20231017
  Receipt Date: 20231017
  Transmission Date: 20240110
  Serious: Yes (Death, Other)
  Sender: FDA-Public Use
  Company Number: KR-SA-2016SA122980

PATIENT
  Age: 29 Year
  Sex: Female

DRUGS (2)
  1. ZOLPIDEM TARTRATE [Suspect]
     Active Substance: ZOLPIDEM TARTRATE
     Indication: Insomnia
     Dosage: 1 TO 50 TABLETS
     Route: 048
  2. ZOLPIDEM TARTRATE [Suspect]
     Active Substance: ZOLPIDEM TARTRATE
     Dosage: 50 DF,UNK
     Route: 048
     Dates: end: 20160430

REACTIONS (5)
  - Completed suicide [Fatal]
  - Drug dependence [Fatal]
  - Intentional self-injury [Fatal]
  - Abnormal behaviour [Fatal]
  - Withdrawal syndrome [Fatal]
